FAERS Safety Report 24739315 (Version 2)
Quarter: 2025Q1

REPORT INFORMATION
  Report Type: Report from Study
  Country: CA (occurrence: CA)
  Receive Date: 20241216
  Receipt Date: 20250123
  Transmission Date: 20250408
  Serious: Yes (Other)
  Sender: TAKEDA
  Company Number: CA-TAKEDA-2024TUS116307

PATIENT
  Age: 55 Year
  Sex: Male

DRUGS (7)
  1. VEDOLIZUMAB [Suspect]
     Active Substance: VEDOLIZUMAB
     Indication: Colitis ulcerative
  2. VEDOLIZUMAB [Suspect]
     Active Substance: VEDOLIZUMAB
     Dosage: 300 MILLIGRAM, Q4WEEKS
     Dates: start: 20241025
  3. MESALAMINE [Concomitant]
     Active Substance: MESALAMINE
     Dosage: 4.8 GRAM, QD
  4. MESALAMINE [Concomitant]
     Active Substance: MESALAMINE
     Dosage: 1.2 GRAM, BID
  5. Cortiment [Concomitant]
  6. IRON [Concomitant]
     Active Substance: IRON
     Indication: Supplementation therapy
  7. PREDNISONE [Concomitant]
     Active Substance: PREDNISONE
     Dosage: UNK UNK, 1/WEEK

REACTIONS (10)
  - Colitis ulcerative [Unknown]
  - Colon dysplasia [Unknown]
  - Off label use [Unknown]
  - Cytomegalovirus test positive [Unknown]
  - Drug ineffective [Unknown]
  - Colorectal adenoma [Unknown]
  - Large intestine polyp [Unknown]
  - Frequent bowel movements [Unknown]
  - Dyspnoea [Unknown]
  - Fatigue [Unknown]

NARRATIVE: CASE EVENT DATE: 20241025
